FAERS Safety Report 7089553-5 (Version None)
Quarter: 2010Q4

REPORT INFORMATION
  Report Type: 
  Country: None (occurrence: None)
  Receive Date: 20101029
  Receipt Date: 20101020
  Transmission Date: 20110411
  Serious: Yes (Death, Life-Threatening)
  Sender: FDA-Public Use
  Company Number: 2010EN000059

PATIENT
  Age: 90 Year

DRUGS (4)
  1. MELPHALAN HYDROCHLORIDE [Suspect]
     Indication: MULTIPLE MYELOMA
     Dosage: 8 MG/M2/DAY;PO
     Route: 048
  2. PREDNISOLONE [Suspect]
     Indication: MULTIPLE MYELOMA
     Dosage: 60 MG/M2/DAY;PO
     Route: 048
  3. CON MEDS [Concomitant]
  4. PREV MEDS [Concomitant]

REACTIONS (1)
  - DEEP VEIN THROMBOSIS [None]
